FAERS Safety Report 7893771-3 (Version None)
Quarter: 2011Q4

REPORT INFORMATION
  Report Type: 
  Country: None (occurrence: None)
  Receive Date: 20111104
  Receipt Date: 20111102
  Transmission Date: 20120403
  Serious: Yes (Hospitalization)
  Sender: FDA-Public Use
  Company Number: DE-ABBOTT-11P-062-0850316-00

PATIENT
  Sex: Female

DRUGS (6)
  1. BASIS CREME DAC AD 100 [Concomitant]
     Indication: PSORIASIS
     Dates: start: 20110626
  2. BETAMETASON 17 VALERAT 0.1 [Concomitant]
     Indication: PSORIASIS
     Dates: start: 20110626
  3. HUMIRA [Suspect]
     Indication: PSORIASIS
     Route: 058
     Dates: start: 20100420, end: 20110601
  4. THESIT [Concomitant]
     Indication: PSORIASIS
     Dates: start: 20110626
  5. METHOTREXATE [Concomitant]
     Indication: PSORIASIS
     Dates: start: 20110629, end: 20110801
  6. FOLIC ACID [Concomitant]
     Indication: PSORIASIS
     Dosage: 5.9 TABLETS
     Dates: start: 20110626

REACTIONS (1)
  - PULMONARY OEDEMA [None]
